FAERS Safety Report 11781676 (Version 3)
Quarter: 2016Q1

REPORT INFORMATION
  Report Type: Spontaneous
  Country: US (occurrence: US)
  Receive Date: 20151126
  Receipt Date: 20160225
  Transmission Date: 20160525
  Serious: Yes (Other)
  Sender: FDA-Public Use
  Company Number: US-009507513-1511USA007471

PATIENT
  Age: 34 Year
  Sex: Female
  Weight: 72.11 kg

DRUGS (3)
  1. PRILOSEC [Concomitant]
     Active Substance: OMEPRAZOLE MAGNESIUM
     Dosage: 40 MG, QD
     Route: 048
     Dates: start: 20150814
  2. BENTYL [Concomitant]
     Active Substance: DICYCLOMINE HYDROCHLORIDE
     Dosage: 10 MG, TID
     Dates: start: 20150814
  3. NEXPLANON [Suspect]
     Active Substance: ETONOGESTREL
     Indication: CONTRACEPTION
     Dosage: UNK
     Route: 058
     Dates: start: 20131226, end: 20140908

REACTIONS (16)
  - Epistaxis [Unknown]
  - Abdominal distension [Unknown]
  - Temperature intolerance [Unknown]
  - Amenorrhoea [Not Recovered/Not Resolved]
  - Weight increased [Unknown]
  - Alanine aminotransferase increased [Unknown]
  - Metrorrhagia [Recovered/Resolved]
  - Hot flush [Unknown]
  - Nausea [Recovered/Resolved]
  - Mood altered [Unknown]
  - Anxiety [Recovered/Resolved]
  - Menstruation irregular [Unknown]
  - Depression [Recovered/Resolved]
  - Adnexa uteri pain [Unknown]
  - Aspartate aminotransferase increased [Unknown]
  - Night sweats [Unknown]

NARRATIVE: CASE EVENT DATE: 2014
